FAERS Safety Report 13777847 (Version 2)
Quarter: 2017Q4

REPORT INFORMATION
  Report Type: Spontaneous
  Country: US (occurrence: US)
  Receive Date: 20170721
  Receipt Date: 20171218
  Transmission Date: 20180320
  Serious: No
  Sender: FDA-Public Use
  Company Number: US-LUNDBECK-DKLU2032436

PATIENT
  Sex: Male

DRUGS (2)
  1. NORTHERA [Suspect]
     Active Substance: DROXIDOPA
     Indication: PRODUCT USED FOR UNKNOWN INDICATION
     Route: 065
     Dates: start: 201705
  2. NORTHERA [Suspect]
     Active Substance: DROXIDOPA
     Dosage: 3-3-4
     Route: 065

REACTIONS (4)
  - Hypertension [Unknown]
  - Blood pressure decreased [Unknown]
  - Insomnia [Unknown]
  - Heart rate increased [Unknown]
